FAERS Safety Report 15335466 (Version 1)
Quarter: 2018Q3

REPORT INFORMATION
  Report Type: Spontaneous
  Country: JP (occurrence: JP)
  Receive Date: 20180830
  Receipt Date: 20180830
  Transmission Date: 20181010
  Serious: Yes (Hospitalization)
  Sender: FDA-Public Use
  Company Number: JP-009507513-1808JPN002735J

PATIENT
  Age: 86 Year
  Sex: Female

DRUGS (3)
  1. STROMECTOL [Suspect]
     Active Substance: IVERMECTIN
     Indication: ACARODERMATITIS
     Dosage: 6 MG, UNK
     Route: 048
     Dates: start: 20180727
  2. STROMECTOL [Suspect]
     Active Substance: IVERMECTIN
     Dosage: 6 MG, UNK
     Route: 048
     Dates: start: 20170803
  3. STROMECTOL [Suspect]
     Active Substance: IVERMECTIN
     Dosage: 6 MG, UNK
     Route: 048
     Dates: start: 20180808

REACTIONS (2)
  - Inappropriate schedule of drug administration [Unknown]
  - Dysphagia [Not Recovered/Not Resolved]

NARRATIVE: CASE EVENT DATE: 20180730
